FAERS Safety Report 4743604-9 (Version None)
Quarter: 2005Q3

REPORT INFORMATION
  Report Type: 
  Country: None (occurrence: None)
  Receive Date: 20050812
  Receipt Date: 20050808
  Transmission Date: 20060218
  Serious: Yes (Other)
  Sender: FDA-Public Use
  Company Number: 200517084GDDC

PATIENT
  Sex: Female

DRUGS (5)
  1. LEFLUNOMIDE [Suspect]
     Indication: POLYARTHRITIS
     Route: 048
     Dates: start: 20050201
  2. MEDROL [Concomitant]
  3. COMBIVENT [Concomitant]
  4. LOSEC [Concomitant]
  5. MEFLONIDE FORADIL [Concomitant]

REACTIONS (4)
  - DYSPNOEA [None]
  - HYPOXIA [None]
  - OBSTRUCTIVE AIRWAYS DISORDER [None]
  - RESPIRATORY FAILURE [None]
